FAERS Safety Report 11723111 (Version 1)
Quarter: 2015Q4

REPORT INFORMATION
  Report Type: Spontaneous
  Country: US (occurrence: US)
  Receive Date: 20151111
  Receipt Date: 20151111
  Transmission Date: 20160304
  Serious: Yes (Other)
  Sender: FDA-Public Use
  Company Number: US-PFIZER INC-2015368094

PATIENT
  Age: 60 Year
  Sex: Female

DRUGS (1)
  1. LYRICA [Suspect]
     Active Substance: PREGABALIN
     Dosage: 150 MG, 3X/DAY

REACTIONS (10)
  - Arthropathy [Unknown]
  - Product packaging quantity issue [Unknown]
  - Burning sensation [Unknown]
  - Abasia [Unknown]
  - Musculoskeletal stiffness [Unknown]
  - Pain [Unknown]
  - Joint lock [Unknown]
  - Pain in extremity [Unknown]
  - Arthralgia [Unknown]
  - Diabetic neuropathy [Unknown]
